FAERS Safety Report 23805060 (Version 2)
Quarter: 2024Q2

REPORT INFORMATION
  Report Type: Spontaneous
  Country: EG (occurrence: EG)
  Receive Date: 20240502
  Receipt Date: 20240507
  Transmission Date: 20240716
  Serious: Yes (Hospitalization, Other)
  Sender: FDA-Public Use
  Company Number: EG-NOVOPROD-1207895

PATIENT
  Age: 26 Month
  Sex: Female
  Weight: 12 kg

DRUGS (4)
  1. ELBAVIT [Concomitant]
     Indication: Vitamin supplementation
     Dosage: 3.5 ML, QD
     Route: 048
     Dates: start: 20240405
  2. TRESIBA [Suspect]
     Active Substance: INSULIN DEGLUDEC
     Indication: Type 1 diabetes mellitus
     Dosage: 4 IU, QD
     Route: 058
     Dates: start: 20240329
  3. VIDROP [Concomitant]
     Indication: Vitamin supplementation
     Dosage: 4 DROPS/DAY
     Route: 048
  4. NOVORAPID [Suspect]
     Active Substance: INSULIN ASPART
     Indication: Type 1 diabetes mellitus
     Dosage: 4 IU, QD(1U AT BREAKFAST, 1U AT LUNCH AND 2U AT DINNER)
     Route: 058
     Dates: start: 20240329

REACTIONS (2)
  - Hypoglycaemia [Not Recovered/Not Resolved]
  - Diabetic hyperglycaemic coma [Not Recovered/Not Resolved]

NARRATIVE: CASE EVENT DATE: 20240416
